FAERS Safety Report 11490786 (Version 1)
Quarter: 2015Q3

REPORT INFORMATION
  Report Type: Spontaneous
  Country: FR (occurrence: None)
  Receive Date: 20150910
  Receipt Date: 20150910
  Transmission Date: 20151125
  Serious: Yes (Hospitalization, Other)
  Sender: FDA-Public Use
  Company Number: FR-MDT-ADR-2015-01756

PATIENT
  Age: 58 Year
  Sex: Male

DRUGS (2)
  1. PARACETAMOL UNKNOWN [Suspect]
     Active Substance: ACETAMINOPHEN
     Dosage: 4G QD
  2. LIORESAL [Suspect]
     Active Substance: BACLOFEN
     Dosage: 30MG QD

REACTIONS (8)
  - Swelling [None]
  - Urticaria [None]
  - Hypersensitivity [None]
  - Angioedema [None]
  - Rash papular [None]
  - Pyrexia [None]
  - Pain [None]
  - Skin lesion [None]
